FAERS Safety Report 22296515 (Version 1)
Quarter: 2023Q2

REPORT INFORMATION
  Report Type: Spontaneous
  Country: FR (occurrence: None)
  Receive Date: 20230508
  Receipt Date: 20230508
  Transmission Date: 20230721
  Serious: Yes (Hospitalization)
  Sender: FDA-Public Use
  Company Number: 2023A100659

PATIENT
  Age: 87 Year
  Sex: Male
  Weight: 64 kg

DRUGS (8)
  1. CALQUENCE [Suspect]
     Active Substance: ACALABRUTINIB
     Indication: Chronic lymphocytic leukaemia
     Dosage: 100 MG IN THE MORNING
     Route: 048
     Dates: start: 20230207, end: 20230416
  2. MOVICOL [Concomitant]
     Active Substance: POLYETHYLENE GLYCOL 3350\POTASSIUM CHLORIDE\SODIUM BICARBONATE\SODIUM CHLORIDE
  3. ATORVASTATIN [Concomitant]
     Active Substance: ATORVASTATIN
  4. ENALAPRIL [Concomitant]
     Active Substance: ENALAPRIL
  5. CHLORHYDRATE DE MEBEVERINE [Concomitant]
  6. KARDEGIC [Concomitant]
     Active Substance: ASPIRIN DL-LYSINE
  7. LANSOPRAZOLE [Concomitant]
     Active Substance: LANSOPRAZOLE
  8. NICARDIPINE HYDROCHLORIDE [Concomitant]
     Active Substance: NICARDIPINE HYDROCHLORIDE

REACTIONS (3)
  - Pneumonia [Not Recovered/Not Resolved]
  - Cardiac failure [Not Recovered/Not Resolved]
  - Acute pulmonary oedema [Not Recovered/Not Resolved]

NARRATIVE: CASE EVENT DATE: 20230416
